FAERS Safety Report 5320616-8 (Version None)
Quarter: 2007Q2

REPORT INFORMATION
  Report Type: 
  Country: None (occurrence: None)
  Receive Date: 20070509
  Receipt Date: 20070508
  Transmission Date: 20071010
  Serious: Yes (Life-Threatening)
  Sender: FDA-Public Use
  Company Number: US-BRISTOL-MYERS SQUIBB COMPANY-13758149

PATIENT
  Age: 54 Year
  Sex: Female

DRUGS (3)
  1. DEFINITY [Suspect]
     Indication: ECHOCARDIOGRAM
     Dosage: GIVEN OVER 30 MINUTES IN 2 DIVIDED DOSES
     Route: 042
     Dates: start: 20070423, end: 20070423
  2. ADVAIR DISKUS 100/50 [Concomitant]
     Route: 055
  3. ADVAIR DISKUS 100/50 [Concomitant]
     Route: 055

REACTIONS (4)
  - ERYTHEMA [None]
  - FLUSHING [None]
  - LIP SWELLING [None]
  - SWOLLEN TONGUE [None]
